FAERS Safety Report 5625837-2 (Version None)
Quarter: 2008Q1

REPORT INFORMATION
  Report Type: 
  Country: None (occurrence: None)
  Receive Date: 20080213
  Receipt Date: 20080213
  Transmission Date: 20080703
  Serious: No
  Sender: FDA-Public Use
  Company Number: None

PATIENT

DRUGS (2)
  1. ZOCOR [Suspect]
  2. TRICOR [Suspect]

REACTIONS (5)
  - APHAGIA [None]
  - APHASIA [None]
  - DYSARTHRIA [None]
  - DYSPHAGIA [None]
  - ORAL INTAKE REDUCED [None]
